FAERS Safety Report 12832058 (Version 2)
Quarter: 2016Q4

REPORT INFORMATION
  Report Type: Report from Study
  Country: US (occurrence: US)
  Receive Date: 20161010
  Receipt Date: 20161201
  Transmission Date: 20170207
  Serious: Yes (Hospitalization, Other)
  Sender: FDA-Public Use
  Company Number: US-ROCHE-1592232

PATIENT
  Age: 57 Year
  Sex: Female
  Weight: 68 kg

DRUGS (25)
  1. BEVACIZUMAB [Suspect]
     Active Substance: BEVACIZUMAB
     Dosage: CYCLE 13
     Route: 042
     Dates: start: 20160209
  2. PACLITAXEL. [Suspect]
     Active Substance: PACLITAXEL
     Indication: FALLOPIAN TUBE CANCER
     Dosage: OVER 3 HRS ON DAY 1; DATE OF LAST DOSE ADMINISTRATION: 21/MAY/2015
     Route: 042
     Dates: start: 20150430
  3. BEVACIZUMAB [Suspect]
     Active Substance: BEVACIZUMAB
     Indication: FALLOPIAN TUBE CANCER
     Dosage: OVER 30-90 MINS. ON DAY 1
     Route: 042
     Dates: start: 20150430
  4. BEVACIZUMAB [Suspect]
     Active Substance: BEVACIZUMAB
     Route: 042
     Dates: start: 20150521
  5. BEVACIZUMAB [Suspect]
     Active Substance: BEVACIZUMAB
     Dosage: CYCLE 10
     Route: 042
     Dates: start: 20151207
  6. BEVACIZUMAB [Suspect]
     Active Substance: BEVACIZUMAB
     Dosage: CYCLE 15
     Route: 042
     Dates: start: 20160329
  7. BEVACIZUMAB [Suspect]
     Active Substance: BEVACIZUMAB
     Dosage: CYCLE 12
     Route: 042
     Dates: start: 20160119
  8. VELIPARIB [Suspect]
     Active Substance: VELIPARIB
     Indication: FALLOPIAN TUBE CANCER
     Dosage: DATE OF LAST DOSE ADMINISTRATION: 25/MAY/2015
     Route: 048
     Dates: start: 20150430
  9. VELIPARIB [Suspect]
     Active Substance: VELIPARIB
     Route: 048
     Dates: start: 20150709
  10. CARBOPLATIN. [Suspect]
     Active Substance: CARBOPLATIN
     Indication: FALLOPIAN TUBE CANCER
     Dosage: AUC=6; OVER 30 MINS ON DAY 1; DATE OF LAST DOSE ADMINISTRATION: 21/MAY/2015
     Route: 042
  11. BEVACIZUMAB [Suspect]
     Active Substance: BEVACIZUMAB
     Route: 042
     Dates: start: 20150618
  12. BEVACIZUMAB [Suspect]
     Active Substance: BEVACIZUMAB
     Route: 042
     Dates: start: 20150807
  13. BEVACIZUMAB [Suspect]
     Active Substance: BEVACIZUMAB
     Route: 042
     Dates: start: 20150904
  14. BEVACIZUMAB [Suspect]
     Active Substance: BEVACIZUMAB
     Dosage: CYCLE 9
     Route: 042
     Dates: start: 20151116
  15. BEVACIZUMAB [Suspect]
     Active Substance: BEVACIZUMAB
     Dosage: CYCLE 14
     Route: 042
     Dates: start: 20160308
  16. BEVACIZUMAB [Suspect]
     Active Substance: BEVACIZUMAB
     Dosage: CYCLE 17
     Route: 042
     Dates: start: 20160510
  17. BEVACIZUMAB [Suspect]
     Active Substance: BEVACIZUMAB
     Route: 042
     Dates: start: 20150709
  18. BEVACIZUMAB [Suspect]
     Active Substance: BEVACIZUMAB
     Dosage: CYCLE 8
     Route: 042
     Dates: start: 20151026
  19. VELIPARIB [Suspect]
     Active Substance: VELIPARIB
     Dosage: DATE OF LAST DOSE ADMINISTRATION: 25/MAY/2015
     Route: 048
     Dates: start: 20150519
  20. BEVACIZUMAB [Suspect]
     Active Substance: BEVACIZUMAB
     Dosage: CYCLE 7
     Route: 042
     Dates: start: 20151002
  21. BEVACIZUMAB [Suspect]
     Active Substance: BEVACIZUMAB
     Dosage: CYCLE 11
     Route: 042
     Dates: start: 20151228
  22. BEVACIZUMAB [Suspect]
     Active Substance: BEVACIZUMAB
     Dosage: CYCLE 16
     Route: 042
     Dates: start: 20160419
  23. VELIPARIB [Suspect]
     Active Substance: VELIPARIB
     Route: 048
     Dates: start: 20150618
  24. VELIPARIB [Suspect]
     Active Substance: VELIPARIB
     Route: 048
     Dates: start: 20150807
  25. VELIPARIB [Suspect]
     Active Substance: VELIPARIB
     Route: 048
     Dates: start: 20150409

REACTIONS (4)
  - Neutrophil count decreased [Unknown]
  - Anaemia [Unknown]
  - Hypertension [Unknown]
  - Abdominal infection [Not Recovered/Not Resolved]

NARRATIVE: CASE EVENT DATE: 20150601
